FAERS Safety Report 13094803 (Version 1)
Quarter: 2017Q1

REPORT INFORMATION
  Report Type: Spontaneous
  Country: US (occurrence: US)
  Receive Date: 20170106
  Receipt Date: 20170106
  Transmission Date: 20170428
  Serious: Yes (Other)
  Sender: FDA-Public Use
  Company Number: US-ELI_LILLY_AND_COMPANY-US201607010815

PATIENT
  Sex: Female
  Weight: 95 kg

DRUGS (2)
  1. CYMBALTA [Suspect]
     Active Substance: DULOXETINE HYDROCHLORIDE
     Indication: PRODUCT USED FOR UNKNOWN INDICATION
     Dosage: 30 MG, EACH MORNING
     Route: 065
     Dates: start: 20140919
  2. ABILIFY [Concomitant]
     Active Substance: ARIPIPRAZOLE
     Indication: AFFECTIVE DISORDER
     Dosage: 1 DF, QD
     Route: 048

REACTIONS (15)
  - Dysphoria [Unknown]
  - Headache [Unknown]
  - Confusional state [Unknown]
  - Lethargy [Unknown]
  - Diarrhoea [Unknown]
  - Dizziness [Unknown]
  - Affect lability [Unknown]
  - Fatigue [Unknown]
  - Hyperhidrosis [Unknown]
  - Vertigo [Unknown]
  - Drug withdrawal syndrome [Unknown]
  - Irritability [Unknown]
  - Suicidal ideation [Unknown]
  - Hallucination, auditory [Unknown]
  - Paraesthesia [Unknown]
